FAERS Safety Report 10508395 (Version 2)
Quarter: 2015Q1

REPORT INFORMATION
  Report Type: Spontaneous
  Country: US (occurrence: US)
  Receive Date: 20141009
  Receipt Date: 20150115
  Transmission Date: 20150720
  Serious: No
  Sender: FDA-Public Use
  Company Number: US-ASTELLAS-2014US012668

PATIENT
  Sex: Female

DRUGS (2)
  1. MYRBETRIQ [Suspect]
     Active Substance: MIRABEGRON
     Indication: URINARY INCONTINENCE
     Route: 048
  2. MYRBETRIQ [Suspect]
     Active Substance: MIRABEGRON
     Route: 065

REACTIONS (6)
  - Nocturia [Recovering/Resolving]
  - Fatigue [Unknown]
  - Enuresis [Unknown]
  - Somnolence [Unknown]
  - Intentional product use issue [Unknown]
  - Drug ineffective [Unknown]
